FAERS Safety Report 21476208 (Version 8)
Quarter: 2023Q2

REPORT INFORMATION
  Report Type: Spontaneous
  Country: CA (occurrence: CA)
  Receive Date: 20221019
  Receipt Date: 20230629
  Transmission Date: 20230721
  Serious: Yes (Other)
  Sender: FDA-Public Use
  Company Number: CA-CELLTRION INC.-2022CA016762

PATIENT

DRUGS (8)
  1. INFLECTRA [Suspect]
     Active Substance: INFLIXIMAB-DYYB
     Indication: Crohn^s disease
     Dosage: 300 MG, INDUCTION WEEK 0, 2 ,6 THEN MAINTENANCE EVERY 8 WEEKS.
     Dates: start: 20220924
  2. INFLECTRA [Suspect]
     Active Substance: INFLIXIMAB-DYYB
     Dosage: 300 MG, INDUCTION WEEK 0, 2 ,6 THEN MAINTENANCE EVERY 8 WEEKS.
     Dates: start: 20221006
  3. INFLECTRA [Suspect]
     Active Substance: INFLIXIMAB-DYYB
     Dosage: 300 MG, INDUCTION WEEK 0, 2 ,6 THEN MAINTENANCE EVERY 8 WEEKS
     Dates: start: 20221117
  4. INFLECTRA [Suspect]
     Active Substance: INFLIXIMAB-DYYB
     Dosage: 300 MG, INDUCTION WEEK 0, 2 ,6 THEN MAINTENANCE EVERY 8 WEEKS.
     Dates: start: 20221117
  5. INFLECTRA [Suspect]
     Active Substance: INFLIXIMAB-DYYB
     Dosage: 300 MG, 6 WEEKS AFTER 3RD DOSE THEN EVERY 8 WEEKS
     Route: 042
     Dates: start: 20221229
  6. INFLECTRA [Suspect]
     Active Substance: INFLIXIMAB-DYYB
     Dosage: 300 MG, 6 WEEKS AFTER 3RD DOSE THEN EVERY 8 WEEKS
     Route: 042
     Dates: start: 20230227
  7. INFLECTRA [Suspect]
     Active Substance: INFLIXIMAB-DYYB
     Dosage: 300MG, AFTER 8 WEEKS
     Route: 042
     Dates: start: 20230426
  8. INFLECTRA [Suspect]
     Active Substance: INFLIXIMAB-DYYB
     Dosage: 300 MG, (6 WEEKS AFTER 3RD DOSE THEN EVERY 8 WEEKS)
     Route: 042
     Dates: start: 20230619

REACTIONS (6)
  - Fistula [Recovering/Resolving]
  - Condition aggravated [Recovering/Resolving]
  - Arthralgia [Not Recovered/Not Resolved]
  - Aphthous ulcer [Unknown]
  - Inappropriate schedule of product administration [Unknown]
  - Off label use [Unknown]

NARRATIVE: CASE EVENT DATE: 20220101
